FAERS Safety Report 11435381 (Version 1)
Quarter: 2015Q3

REPORT INFORMATION
  Report Type: Spontaneous
  Country: US (occurrence: US)
  Receive Date: 20150821
  Receipt Date: 20150821
  Transmission Date: 20151125
  Serious: No
  Sender: FDA-Public Use
  Company Number: US-ELI_LILLY_AND_COMPANY-US201309008841

PATIENT
  Sex: Male

DRUGS (3)
  1. CIALIS [Suspect]
     Active Substance: TADALAFIL
     Indication: ERECTILE DYSFUNCTION
     Dosage: 0.5 DF, PRN
  2. CIALIS [Suspect]
     Active Substance: TADALAFIL
     Indication: LOSS OF LIBIDO
     Dosage: 20 MG, PRN
  3. CIALIS [Suspect]
     Active Substance: TADALAFIL
     Dosage: 0.25 DF, PRN

REACTIONS (3)
  - Drug prescribing error [Unknown]
  - Therapeutic response increased [Recovered/Resolved]
  - Myalgia [Recovered/Resolved]
